FAERS Safety Report 4394719-9 (Version None)
Quarter: 2004Q3

REPORT INFORMATION
  Report Type: 
  Country: None (occurrence: None)
  Receive Date: 20040712
  Receipt Date: 20040629
  Transmission Date: 20050211
  Serious: Yes (Other)
  Sender: FDA-Public Use
  Company Number: PHNU2004DE02304

PATIENT
  Age: 38 Year
  Sex: Female
  Weight: 61 kg

DRUGS (1)
  1. LEPONEX / CLOZARIL (CLOZAPINE) [Suspect]
     Indication: BRIEF PSYCHOTIC DISORDER, WITH POSTPARTUM ONSET
     Dosage: UP TO 200MG/DAY
     Route: 048
     Dates: end: 20040320

REACTIONS (6)
  - CHEST DISCOMFORT [None]
  - HYPERHIDROSIS [None]
  - INCONTINENCE [None]
  - LOOSE ASSOCIATIONS [None]
  - LYMPHOPENIA [None]
  - SALIVARY HYPERSECRETION [None]
